FAERS Safety Report 5643038-9 (Version None)
Quarter: 2008Q1

REPORT INFORMATION
  Report Type: 
  Country: None (occurrence: None)
  Receive Date: 20080228
  Receipt Date: 20080219
  Transmission Date: 20080703
  Serious: Yes (Hospitalization, Other)
  Sender: FDA-Public Use
  Company Number: PHHY2007CA00901

PATIENT
  Age: 87 Year
  Sex: Female

DRUGS (10)
  1. EXELON [Suspect]
     Indication: DEMENTIA ALZHEIMER'S TYPE
     Dosage: 1.5 MG, QID
     Route: 048
     Dates: start: 20070905, end: 20071016
  2. EXELON [Suspect]
     Dosage: UNK, UNK
     Route: 048
     Dates: start: 20070606
  3. ARICEPT [Concomitant]
     Dates: start: 20071201
  4. ASPIRIN [Concomitant]
     Dosage: 81 MG DAILY
  5. PARIET [Concomitant]
     Dosage: 20 MG DAILY
  6. MICARDIS [Concomitant]
     Dosage: 80 MG DAILY
  7. TIAZAC [Concomitant]
     Dosage: 360 MG DAILY
  8. EFFEXOR XR [Concomitant]
     Dosage: 37.5 MG, BID
  9. FOSAMAX [Concomitant]
     Dosage: 70 MG WEEKLY
  10. VITAMIN B-12 [Concomitant]
     Dosage: VITAMIN B12 SHOTS

REACTIONS (5)
  - CARDIAC DISORDER [None]
  - CARDIAC PACEMAKER INSERTION [None]
  - FATIGUE [None]
  - GASTRIC DISORDER [None]
  - NAUSEA [None]
